FAERS Safety Report 11836101 (Version 1)
Quarter: 2015Q4

REPORT INFORMATION
  Report Type: Spontaneous
  Country: US (occurrence: None)
  Receive Date: 20151214
  Receipt Date: 20151214
  Transmission Date: 20160305
  Serious: Yes (Other)
  Sender: FDA-Public Use
  Company Number: None

PATIENT
  Age: 68 Year
  Sex: Male
  Weight: 68.8 kg

DRUGS (1)
  1. PREDNISONE. [Suspect]
     Active Substance: PREDNISONE
     Indication: RASH
     Dates: start: 20150610, end: 20150806

REACTIONS (3)
  - Neurosis [None]
  - Somatic delusion [None]
  - Substance-induced psychotic disorder [None]

NARRATIVE: CASE EVENT DATE: 20150813
